FAERS Safety Report 14629974 (Version 1)
Quarter: 2018Q1

REPORT INFORMATION
  Report Type: Other
  Country: IT (occurrence: IT)
  Receive Date: 20180313
  Receipt Date: 20180313
  Transmission Date: 20180509
  Serious: Yes (Hospitalization, Other)
  Sender: FDA-Public Use
  Company Number: IT-GLENMARK PHARMACEUTICALS-2017GMK033159

PATIENT

DRUGS (3)
  1. PARACETAMOL [Suspect]
     Active Substance: ACETAMINOPHEN
     Indication: DRUG ABUSE
     Dosage: TOTAL:12 G
     Route: 065
     Dates: start: 20170831, end: 20170831
  2. ORUDIS [Suspect]
     Active Substance: KETOPROFEN
     Indication: DRUG ABUSE
     Dosage: TOTAL: 300 MG
     Route: 048
     Dates: start: 20170831, end: 20170831
  3. MONTELUKAST SODIUM. [Suspect]
     Active Substance: MONTELUKAST SODIUM
     Indication: DRUG ABUSE
     Dosage: TOTAL: 15 MG
     Route: 048
     Dates: start: 20170831, end: 20170831

REACTIONS (3)
  - Drug abuse [Recovered/Resolved]
  - Abdominal pain [Recovered/Resolved]
  - Vomiting [Recovered/Resolved]

NARRATIVE: CASE EVENT DATE: 20170831
